FAERS Safety Report 23998034 (Version 1)
Quarter: 2024Q2

REPORT INFORMATION
  Report Type: Spontaneous
  Country: US (occurrence: US)
  Receive Date: 20240621
  Receipt Date: 20240621
  Transmission Date: 20240716
  Serious: No
  Sender: FDA-Public Use
  Company Number: US-REVANCE THERAPEUTICS INC.-US-REV-2024-000217

PATIENT

DRUGS (2)
  1. DAXIBOTULINUMTOXIN A-LANM [Suspect]
     Active Substance: DAXIBOTULINUMTOXIN A-LANM
     Indication: Skin wrinkling
     Dosage: FOREHEAD (UNK)
     Route: 065
     Dates: start: 20240327
  2. DAXIBOTULINUMTOXIN A-LANM [Suspect]
     Active Substance: DAXIBOTULINUMTOXIN A-LANM
     Dosage: TOUCH UP
     Route: 065
     Dates: start: 202404

REACTIONS (6)
  - Head discomfort [Not Recovered/Not Resolved]
  - Lymphadenopathy [Not Recovered/Not Resolved]
  - Muscle fatigue [Not Recovered/Not Resolved]
  - Vision blurred [Not Recovered/Not Resolved]
  - Dyspnoea [Not Recovered/Not Resolved]
  - Off label use [Unknown]

NARRATIVE: CASE EVENT DATE: 20240327
